FAERS Safety Report 18063076 (Version 2)
Quarter: 2020Q3

REPORT INFORMATION
  Report Type: Spontaneous
  Country: US (occurrence: US)
  Receive Date: 20200723
  Receipt Date: 20200901
  Transmission Date: 20201103
  Serious: Yes (Other)
  Sender: FDA-Public Use
  Company Number: US-PFIZER INC-2020228087

PATIENT
  Age: 77 Year
  Sex: Female
  Weight: 45.35 kg

DRUGS (2)
  1. XELJANZ XR [Suspect]
     Active Substance: TOFACITINIB CITRATE
     Indication: RHEUMATOID ARTHRITIS
     Dosage: 11 MG, 1X/DAY
     Dates: start: 202001
  2. ALLEGRA?D [Concomitant]
     Active Substance: FEXOFENADINE\PSEUDOEPHEDRINE
     Dosage: UNK
     Dates: start: 202001

REACTIONS (5)
  - Diarrhoea [Unknown]
  - Dry eye [Unknown]
  - Confusional state [Unknown]
  - Nasal congestion [Unknown]
  - Hypothyroidism [Unknown]
